FAERS Safety Report 7026440-2 (Version None)
Quarter: 2010Q4

REPORT INFORMATION
  Report Type: 
  Country: None (occurrence: None)
  Receive Date: 20101004
  Receipt Date: 20100929
  Transmission Date: 20110411
  Serious: Yes (Death, Hospitalization)
  Sender: FDA-Public Use
  Company Number: PHHY2010JP34751

PATIENT
  Sex: Male
  Weight: 52 kg

DRUGS (2)
  1. COMTAN CMT+TAB [Suspect]
     Indication: DRUG EFFECT DECREASED
     Dosage: 300MG, DAILY
     Route: 048
     Dates: end: 20080919
  2. LEVODOPA BENSERAZIDE HYDROCHLORIDE [Concomitant]
     Indication: PARKINSON'S DISEASE
     Dosage: 300 MG,
     Route: 048
     Dates: start: 20070605

REACTIONS (2)
  - PNEUMONIA [None]
  - SUBDURAL HAEMATOMA [None]
